FAERS Safety Report 4860349-5 (Version None)
Quarter: 2005Q4

REPORT INFORMATION
  Report Type: 
  Country: None (occurrence: None)
  Receive Date: 20051219
  Receipt Date: 20051209
  Transmission Date: 20060501
  Serious: Yes (Other)
  Sender: FDA-Public Use
  Company Number: CA-BRISTOL-MYERS SQUIBB COMPANY-13219050

PATIENT
  Age: 76 Year
  Sex: Female

DRUGS (11)
  1. TEQUIN [Suspect]
     Route: 048
  2. AMLODIPINE [Concomitant]
  3. ASPIRIN [Concomitant]
     Route: 048
  4. CLONAZEPAM [Concomitant]
  5. CLONIDINE [Concomitant]
  6. HYDROCHLOROTHIAZIDE [Concomitant]
  7. HEPARIN [Concomitant]
     Route: 058
  8. LASIX [Concomitant]
  9. METOPROLOL [Concomitant]
  10. PIPERAZOLIM + TAZOBACTAM [Concomitant]
  11. RAMIPRIL [Concomitant]

REACTIONS (1)
  - HYPERGLYCAEMIA [None]
